FAERS Safety Report 23075649 (Version 1)
Quarter: 2023Q4

REPORT INFORMATION
  Report Type: Spontaneous
  Country: CH (occurrence: CH)
  Receive Date: 20231017
  Receipt Date: 20231017
  Transmission Date: 20240110
  Serious: Yes (Hospitalization, Other)
  Sender: FDA-Public Use
  Company Number: None

PATIENT
  Age: 70 Year
  Sex: Female

DRUGS (8)
  1. LIBTAYO [Suspect]
     Active Substance: CEMIPLIMAB-RWLC
     Indication: Squamous cell carcinoma of skin
     Dosage: 350 MG, Q3W, (CYCLES EVERY 3 WEEKS, TWICE GIVEN IN TOTAL ; CYCLICAL)
     Dates: start: 20230623, end: 20230714
  2. PALLADONE [Concomitant]
     Active Substance: HYDROMORPHONE HYDROCHLORIDE
     Indication: Product used for unknown indication
     Dosage: 4 MG, QD
     Route: 048
     Dates: start: 202306
  3. TORSEMIDE [Concomitant]
     Active Substance: TORSEMIDE
     Indication: Product used for unknown indication
     Dosage: 5 MG
     Route: 048
     Dates: start: 202306, end: 202309
  4. PANTOPRAZOLE SODIUM [Concomitant]
     Active Substance: PANTOPRAZOLE SODIUM
     Indication: Product used for unknown indication
     Dosage: 40 MG, QD
     Route: 048
     Dates: start: 202308
  5. LORAZEPAM [Concomitant]
     Active Substance: LORAZEPAM
     Indication: Product used for unknown indication
     Dosage: 1 MG, QD
     Route: 048
     Dates: start: 202306
  6. ZELLER FEIGENSIRUP MIT SENNA [Concomitant]
     Indication: Product used for unknown indication
     Dosage: 10 ML, PRN
     Route: 048
     Dates: start: 202306, end: 202309
  7. QUETIAPINE FUMARATE [Concomitant]
     Active Substance: QUETIAPINE FUMARATE
     Indication: Product used for unknown indication
     Dosage: UNK
     Route: 048
     Dates: start: 202307, end: 20230908
  8. NOVALGIN (METAMIZOLE SODIUM) [Concomitant]
     Active Substance: METAMIZOLE SODIUM
     Indication: Product used for unknown indication
     Dosage: 1000 MG, QID
     Route: 048
     Dates: start: 202306, end: 20230809

REACTIONS (2)
  - Vanishing bile duct syndrome [Not Recovered/Not Resolved]
  - Hepatitis cholestatic [Recovering/Resolving]

NARRATIVE: CASE EVENT DATE: 20230701
